FAERS Safety Report 11737166 (Version 1)
Quarter: 2015Q4

REPORT INFORMATION
  Report Type: Spontaneous
  Country: FR (occurrence: FR)
  Receive Date: 20151113
  Receipt Date: 20151113
  Transmission Date: 20160304
  Serious: Yes (Hospitalization, Disabling, Other)
  Sender: FDA-Public Use
  Company Number: FR-ELI_LILLY_AND_COMPANY-FR201511000393

PATIENT
  Age: 64 Year
  Sex: Male

DRUGS (1)
  1. CIALIS [Suspect]
     Active Substance: TADALAFIL
     Indication: ERECTILE DYSFUNCTION
     Dosage: UNK, UNKNOWN
     Route: 048
     Dates: start: 201504, end: 201504

REACTIONS (2)
  - Retinal vascular occlusion [Not Recovered/Not Resolved]
  - Amaurosis fugax [Unknown]

NARRATIVE: CASE EVENT DATE: 201504
